FAERS Safety Report 6263794-9 (Version None)
Quarter: 2009Q3

REPORT INFORMATION
  Report Type: 
  Country: None (occurrence: None)
  Receive Date: 20090710
  Receipt Date: 20090710
  Transmission Date: 20100115
  Serious: Yes (Hospitalization)
  Sender: FDA-Public Use
  Company Number: PHHO2008NO14857

PATIENT
  Sex: Male

DRUGS (5)
  1. NO TREATMENT RECEIVED NOMED [Suspect]
     Indication: HYPERTENSION
     Dosage: NO TREATMENT RECEIVED
  2. AMLODIPINE [Concomitant]
  3. FURIX [Concomitant]
  4. PIROX [Concomitant]
  5. ALBYL-E [Concomitant]

REACTIONS (4)
  - CEREBRAL HAEMORRHAGE [None]
  - CONCOMITANT DISEASE PROGRESSION [None]
  - HYPOAESTHESIA [None]
  - HYPOAESTHESIA FACIAL [None]
